FAERS Safety Report 9754494 (Version 1)
Quarter: 2013Q4

REPORT INFORMATION
  Report Type: Report from Study
  Country: DE (occurrence: TR)
  Receive Date: 20131213
  Receipt Date: 20131213
  Transmission Date: 20140711
  Serious: Yes (Death)
  Sender: FDA-Public Use
  Company Number: DE-ACTELION-A-NJ2013-92393

PATIENT
  Age: 29 Year
  Sex: Female
  Weight: 65 kg

DRUGS (2)
  1. VENTAVIS [Suspect]
     Indication: PULMONARY HYPERTENSION
     Dosage: UNK, 9X1
     Route: 055
     Dates: start: 20131129, end: 20131204
  2. DIGOXIN [Concomitant]
     Dosage: UNK
     Dates: start: 20131129, end: 20131204

REACTIONS (1)
  - Pulmonary embolism [Fatal]
